FAERS Safety Report 10328625 (Version 1)
Quarter: 2014Q3

REPORT INFORMATION
  Report Type: Spontaneous
  Country: NL (occurrence: None)
  Receive Date: 20140717
  Receipt Date: 20140717
  Transmission Date: 20150326
  Serious: Yes (Other)
  Sender: FDA-Public Use
  Company Number: NZ-DEXPHARM-20140418

PATIENT
  Age: 65 Year
  Sex: Female

DRUGS (1)
  1. OMEPRAZOLE. [Suspect]
     Active Substance: OMEPRAZOLE
     Dosage: SEP: DOSAGE. INTERVAL: 1 DAYS

REACTIONS (3)
  - Blood pressure diastolic decreased [None]
  - Blood pressure systolic increased [None]
  - Tubulointerstitial nephritis [None]
